FAERS Safety Report 9089608 (Version 1)
Quarter: 2013Q1

REPORT INFORMATION
  Report Type: Report from Study
  Country: US (occurrence: US)
  Receive Date: 20130130
  Receipt Date: 20130130
  Transmission Date: 20140127
  Serious: No
  Sender: FDA-Public Use
  Company Number: US-ABBOTT-12P-163-0955731-00

PATIENT
  Age: 40 Year
  Sex: Male

DRUGS (7)
  1. HUMIRA 40 MG/0.8 ML PEN [Suspect]
     Indication: CROHN^S DISEASE
     Dates: start: 2007, end: 2008
  2. HUMIRA 40 MG/0.8 ML PEN [Suspect]
     Dates: start: 2008, end: 201101
  3. HUMIRA 40 MG/0.8 ML PEN [Suspect]
     Dates: start: 20120622
  4. PREVALITE [Concomitant]
     Indication: CROHN^S DISEASE
  5. VIT D [Concomitant]
     Indication: SUPPLEMENTATION THERAPY
  6. VIT D [Concomitant]
     Indication: VITAMIN D DEFICIENCY
  7. VITAMIN B12 [Concomitant]
     Indication: VITAMIN B12 DEFICIENCY

REACTIONS (4)
  - Crohn^s disease [Recovering/Resolving]
  - Abdominal pain [Recovering/Resolving]
  - Diarrhoea [Recovering/Resolving]
  - Nausea [Recovering/Resolving]
